FAERS Safety Report 8773214 (Version 2)
Quarter: 2012Q4

REPORT INFORMATION
  Report Type: Report from Study
  Country: US (occurrence: US)
  Receive Date: 20120907
  Receipt Date: 20120912
  Transmission Date: 20130627
  Serious: Yes (Hospitalization)
  Sender: FDA-Public Use
  Company Number: US-JNJFOC-20120901659

PATIENT
  Age: 17 Year
  Sex: Female
  Weight: 58.4 kg

DRUGS (9)
  1. REMICADE [Suspect]
     Indication: INFLAMMATORY BOWEL DISEASE
     Route: 042
     Dates: start: 20120406
  2. REMICADE [Suspect]
     Indication: INFLAMMATORY BOWEL DISEASE
     Route: 042
  3. REMICADE [Suspect]
     Indication: INFLAMMATORY BOWEL DISEASE
     Route: 042
     Dates: start: 20041001
  4. 6-MERCAPTOPURINE [Suspect]
     Indication: PRODUCT USED FOR UNKNOWN INDICATION
  5. BEYAZ [Concomitant]
  6. ZYRTEC [Concomitant]
  7. PREVACID [Concomitant]
  8. FOLIC ACID [Concomitant]
  9. ZONEGRAN [Concomitant]

REACTIONS (1)
  - Infectious mononucleosis [Recovered/Resolved]
